FAERS Safety Report 6399996-0 (Version None)
Quarter: 2009Q4

REPORT INFORMATION
  Report Type: 
  Country: None (occurrence: None)
  Receive Date: 20091014
  Receipt Date: 20091005
  Transmission Date: 20100525
  Serious: Yes (Other)
  Sender: FDA-Public Use
  Company Number: US-ELI_LILLY_AND_COMPANY-US200910001360

PATIENT
  Sex: Male

DRUGS (1)
  1. HUMATROPE [Suspect]
     Indication: HYPOPITUITARISM

REACTIONS (1)
  - HAEMORRHAGIC STROKE [None]
